FAERS Safety Report 24117126 (Version 1)
Quarter: 2024Q3

REPORT INFORMATION
  Report Type: Spontaneous
  Country: US (occurrence: US)
  Receive Date: 20240722
  Receipt Date: 20240722
  Transmission Date: 20241017
  Serious: No
  Sender: MERCK
  Company Number: US-009507513-2406USA009753

PATIENT
  Age: 4 Year
  Sex: Female

DRUGS (2)
  1. TRUSOPT [Suspect]
     Active Substance: DORZOLAMIDE HYDROCHLORIDE
     Indication: Macular oedema
     Dosage: TWICE DAILY BILATERALLY
     Route: 061
  2. OZURDEX [Concomitant]
     Active Substance: DEXAMETHASONE
     Indication: Macular oedema
     Dosage: 0.7 MG IMPLANT BILATERALLY, EVERY 6 MONTHS

REACTIONS (1)
  - Product use in unapproved indication [Unknown]
